FAERS Safety Report 9295340 (Version 1)
Quarter: 2013Q2

REPORT INFORMATION
  Report Type: Spontaneous
  Country: US (occurrence: None)
  Receive Date: 20130516
  Receipt Date: 20130516
  Transmission Date: 20140414
  Serious: Yes (Hospitalization)
  Sender: FDA-Public Use
  Company Number: None

PATIENT
  Age: 53 Year
  Sex: Female

DRUGS (1)
  1. TARGRETIN [Suspect]
     Indication: B-CELL LYMPHOMA
     Route: 048
     Dates: start: 20130221

REACTIONS (3)
  - Herpes zoster [None]
  - Pathogen resistance [None]
  - Herpes ophthalmic [None]
